FAERS Safety Report 6059400-9 (Version None)
Quarter: 2009Q1

REPORT INFORMATION
  Report Type: 
  Country: None (occurrence: None)
  Receive Date: 20090128
  Receipt Date: 20090126
  Transmission Date: 20090719
  Serious: Yes (Hospitalization)
  Sender: FDA-Public Use
  Company Number: 2009SP001750

PATIENT

DRUGS (1)
  1. TEMODAL [Suspect]
     Indication: DRUG USE FOR UNKNOWN INDICATION
     Dosage: 200 MG/M2; PO
     Route: 048

REACTIONS (4)
  - HEPATIC ENZYME INCREASED [None]
  - NEUTROPENIA [None]
  - OVERDOSE [None]
  - WHITE BLOOD CELL COUNT DECREASED [None]
